FAERS Safety Report 9061253 (Version 1)
Quarter: 2013Q3

REPORT INFORMATION
  Report Type: Spontaneous
  Country: US (occurrence: None)
  Receive Date: 20130208
  Receipt Date: 20130208
  Transmission Date: 20140515
  Serious: Yes (Hospitalization)
  Sender: FDA-Public Use
  Company Number: None

PATIENT
  Age: 70 Year
  Sex: Female
  Weight: 51.71 kg

DRUGS (1)
  1. FOLFOX REGIMEN [Suspect]

REACTIONS (3)
  - Ascites [None]
  - Disease progression [None]
  - Nausea [None]
